FAERS Safety Report 8854259 (Version 1)
Quarter: 2012Q4

REPORT INFORMATION
  Report Type: Spontaneous
  Country: US (occurrence: None)
  Receive Date: 20121022
  Receipt Date: 20121022
  Transmission Date: 20130627
  Serious: No
  Sender: FDA-Public Use
  Company Number: None

PATIENT
  Age: 68 Year
  Sex: Male
  Weight: 133.2 kg

DRUGS (2)
  1. ENOXAPARIN [Suspect]
     Indication: ATRIAL FIBRILLATION
     Dosage: 120 MG BID SQ
     Route: 058
     Dates: start: 20120920, end: 20121008
  2. ENOXAPARIN [Suspect]
     Indication: ATRIAL THROMBOSIS
     Dosage: 120 MG BID SQ
     Route: 058
     Dates: start: 20120920, end: 20121008

REACTIONS (7)
  - Shock haemorrhagic [None]
  - Respiratory failure [None]
  - Pneumonia [None]
  - Renal failure acute [None]
  - Generalised oedema [None]
  - Ileus [None]
  - Haemorrhage [None]
